FAERS Safety Report 23223827 (Version 1)
Quarter: 2023Q4

REPORT INFORMATION
  Report Type: Spontaneous
  Country: IT (occurrence: IT)
  Receive Date: 20231124
  Receipt Date: 20231124
  Transmission Date: 20240109
  Serious: Yes (Hospitalization)
  Sender: FDA-Public Use
  Company Number: IT-MINISAL02-954379

PATIENT
  Age: 60 Year
  Sex: Female

DRUGS (1)
  1. AMOXICILLIN\CLAVULANIC ACID [Suspect]
     Active Substance: AMOXICILLIN\CLAVULANIC ACID
     Indication: Bacterial infection
     Dosage: DOSAGGIO: 1UNITA DI MISURA: UNITA POSOLOGICA FREQUENZA SOMMINISTRAZIONE: TOTALE VIA SOMMINISTRAZIONE
     Route: 048
     Dates: start: 20231106, end: 20231106

REACTIONS (3)
  - Drug hypersensitivity [Recovering/Resolving]
  - Dysphonia [Recovering/Resolving]
  - Rash [Recovering/Resolving]

NARRATIVE: CASE EVENT DATE: 20231106
